FAERS Safety Report 9458665 (Version 1)
Quarter: 2013Q3

REPORT INFORMATION
  Report Type: Spontaneous
  Country: US (occurrence: None)
  Receive Date: 20130813
  Receipt Date: 20130813
  Transmission Date: 20140515
  Serious: Yes (Other)
  Sender: FDA-Public Use
  Company Number: None

PATIENT
  Age: 52 Year
  Sex: Male

DRUGS (1)
  1. HUMIRA [Suspect]
     Dosage: 40MG  QOWEEK  SUBCUTANEOUS
     Route: 058
     Dates: start: 20121130, end: 20130703

REACTIONS (5)
  - Pyrexia [None]
  - Chills [None]
  - Skin swelling [None]
  - Erythema [None]
  - Pruritus [None]
